FAERS Safety Report 11890727 (Version 2)
Quarter: 2016Q1

REPORT INFORMATION
  Report Type: Spontaneous
  Country: CA (occurrence: CA)
  Receive Date: 20160105
  Receipt Date: 20160105
  Transmission Date: 20160526
  Serious: Yes (Other)
  Sender: FDA-Public Use
  Company Number: CA-JNJFOC-20151220516

PATIENT
  Age: 60 Year
  Sex: Male
  Weight: 104.33 kg

DRUGS (5)
  1. MOTRIMAX NAPROXEN 200MG 12 HOUR [Suspect]
     Active Substance: NAPROXEN
     Indication: TENDONITIS
     Route: 048
     Dates: start: 20151216, end: 20151221
  2. ANABOLIC STEROIDS [Interacting]
     Active Substance: UNSPECIFIED INGREDIENT
     Indication: PRODUCT USED FOR UNKNOWN INDICATION
     Route: 065
  3. PURE BAKING SODA [Concomitant]
     Active Substance: SODIUM BICARBONATE
     Indication: BLADDER DISORDER
     Dosage: 1-2 GLASSES A DAY
     Route: 065
     Dates: start: 20151216
  4. DELATESTRYL [Interacting]
     Active Substance: TESTOSTERONE ENANTHATE
     Indication: PRODUCT USED FOR UNKNOWN INDICATION
     Dosage: 20 YEARS
     Route: 065
  5. MOTRIN [Interacting]
     Active Substance: IBUPROFEN
     Indication: PRODUCT USED FOR UNKNOWN INDICATION
     Dosage: 1-2 EVERY OTHER DAY
     Route: 065

REACTIONS (6)
  - Platelet disorder [Not Recovered/Not Resolved]
  - Blood disorder [Not Recovered/Not Resolved]
  - Somnolence [Not Recovered/Not Resolved]
  - Contraindicated drug administered [Recovered/Resolved]
  - Drug interaction [Not Recovered/Not Resolved]
  - Lower gastrointestinal haemorrhage [Recovered/Resolved]

NARRATIVE: CASE EVENT DATE: 20151216
